FAERS Safety Report 4496986-X (Version None)
Quarter: 2004Q4

REPORT INFORMATION
  Report Type: 
  Country: None (occurrence: None)
  Receive Date: 20040928
  Receipt Date: 20040726
  Transmission Date: 20050328
  Serious: No
  Sender: FDA-Public Use
  Company Number: 04P-163-0268076-00

PATIENT
  Age: 30 Year
  Sex: Male
  Weight: 65.7716 kg

DRUGS (4)
  1. HUMIRA [Suspect]
     Indication: CROHN'S DISEASE
     Dosage: 40 MG, 1 IN 1 WK, SUBCUTANEOUS
     Route: 058
     Dates: start: 20040719
  2. HUMIRA [Suspect]
     Indication: SPONDYLITIS
     Dosage: 40 MG, 1 IN 1 WK, SUBCUTANEOUS
     Route: 058
     Dates: start: 20040719
  3. ESOMEPRAZOLE [Concomitant]
  4. PREDNISONE [Concomitant]

REACTIONS (1)
  - INJECTION SITE PAIN [None]
